FAERS Safety Report 5711673-5 (Version None)
Quarter: 2008Q2

REPORT INFORMATION
  Report Type: 
  Country: None (occurrence: None)
  Receive Date: 20080421
  Receipt Date: 20080410
  Transmission Date: 20081010
  Serious: Yes (Hospitalization)
  Sender: FDA-Public Use
  Company Number: US-PFIZER INC-2008032219

PATIENT
  Sex: Female
  Weight: 88.636 kg

DRUGS (7)
  1. DETROL LA [Suspect]
     Indication: INCONTINENCE
     Route: 048
  2. PROZAC [Concomitant]
  3. THYROID TAB [Concomitant]
  4. SYNTHROID [Concomitant]
  5. ALL OTHER THERAPEUTIC PRODUCTS [Concomitant]
  6. PREMARIN [Concomitant]
  7. VASOTEC [Concomitant]

REACTIONS (7)
  - DRUG INEFFECTIVE [None]
  - HIP ARTHROPLASTY [None]
  - HYPOTHYROIDISM [None]
  - MEDICATION ERROR [None]
  - PALPITATIONS [None]
  - URINARY INCONTINENCE [None]
  - VITAMIN D DECREASED [None]
